FAERS Safety Report 11091428 (Version 1)
Quarter: 2015Q2

REPORT INFORMATION
  Report Type: Spontaneous
  Country: None (occurrence: None)
  Receive Date: 20150504
  Receipt Date: 20150504
  Transmission Date: 20150821
  Serious: No
  Sender: FDA-Public Use
  Company Number: None

PATIENT
  Age: 3 Year
  Sex: Male
  Weight: 11.79 kg

DRUGS (5)
  1. PREDNISONE. [Suspect]
     Active Substance: PREDNISONE
     Indication: WHEEZING
     Route: 048
     Dates: start: 20150425, end: 20150430
  2. CLARITIN [Concomitant]
     Active Substance: LORATADINE
  3. BENADRYL [Concomitant]
     Active Substance: DIPHENHYDRAMINE HYDROCHLORIDE
  4. PREDNISONE. [Suspect]
     Active Substance: PREDNISONE
     Indication: COUGH
     Route: 048
     Dates: start: 20150425, end: 20150430
  5. DAILY KIDS MULTI VITAMIN [Concomitant]

REACTIONS (3)
  - No therapeutic response [None]
  - Crying [None]
  - Aggression [None]

NARRATIVE: CASE EVENT DATE: 20150425
